FAERS Safety Report 21638092 (Version 1)
Quarter: 2022Q4

REPORT INFORMATION
  Report Type: Spontaneous
  Country: CN (occurrence: CN)
  Receive Date: 20221124
  Receipt Date: 20221124
  Transmission Date: 20230113
  Serious: Yes (Other)
  Sender: FDA-Public Use
  Company Number: CN-Accord-287886

PATIENT
  Age: 53 Year
  Sex: Male

DRUGS (6)
  1. OXALIPLATIN [Suspect]
     Active Substance: OXALIPLATIN
     Indication: Small intestine adenocarcinoma
     Dosage: 220 MG PER DOSE, ADMINISTERED ONCE DURING A TREATMENT CYCLE, 21 DAYS IS USED FOR ONE TREATMENT CYCLE
     Route: 042
     Dates: start: 20210411
  2. GIMERACIL\OTERACIL\TEGAFUR [Suspect]
     Active Substance: GIMERACIL\OTERACIL\TEGAFUR
     Indication: Malignant neoplasm of ampulla of Vater
     Dosage: EACH TIME 60 MG, ORAL MEDICATION, TWICE DAILY FOR 14 CONSECUTIVE DAYS PER TREATMENT CYCLE
     Route: 048
     Dates: start: 20210511
  3. BEVACIZUMAB [Suspect]
     Active Substance: BEVACIZUMAB
     Indication: Metastases to lymph nodes
     Dosage: 5 MG/KG, ADMINISTERED INTRAVENOUSLY, ADMINISTERED ONCE DURING A TREATMENT CYCLE,
     Dates: start: 20210511
  4. BEVACIZUMAB [Suspect]
     Active Substance: BEVACIZUMAB
     Indication: Disease progression
     Dosage: AND 21 DAYS WAS USED FOR ONE TREATMENT CYCLE
     Dates: start: 20210511
  5. OXALIPLATIN [Suspect]
     Active Substance: OXALIPLATIN
     Indication: Disease progression
     Dosage: 220 MG PER DOSE, ADMINISTERED ONCE DURING A TREATMENT CYCLE, 21 DAYS IS USED FOR ONE TREATMENT CYCLE
     Dates: start: 20210411
  6. GIMERACIL\OTERACIL\TEGAFUR [Suspect]
     Active Substance: GIMERACIL\OTERACIL\TEGAFUR
     Indication: Small intestine adenocarcinoma
     Dosage: EACH TIME 60 MG, ORAL MEDICATION, TWICE DAILY FOR 14 CONSECUTIVE DAYS PER TREATMENT CYCLE
     Route: 048
     Dates: start: 20210511

REACTIONS (3)
  - Myelosuppression [Not Recovered/Not Resolved]
  - Infection [Unknown]
  - Peripheral sensory neuropathy [Unknown]

NARRATIVE: CASE EVENT DATE: 20210101
